FAERS Safety Report 7305348-9 (Version None)
Quarter: 2011Q1

REPORT INFORMATION
  Report Type: 
  Country: None (occurrence: None)
  Receive Date: 20110222
  Receipt Date: 20110210
  Transmission Date: 20110831
  Serious: Yes (Death, Hospitalization)
  Sender: FDA-Public Use
  Company Number: PHHO2011DK03306

PATIENT
  Sex: Male
  Weight: 90 kg

DRUGS (1)
  1. ALISKIREN [Suspect]
     Indication: ACUTE MYOCARDIAL INFARCTION
     Dosage: 150 MG,
     Route: 048
     Dates: end: 20110114

REACTIONS (6)
  - FALL [None]
  - PNEUMONIA [None]
  - PNEUMOTHORAX [None]
  - THORACIC CAVITY DRAINAGE [None]
  - CEREBRAL INFARCTION [None]
  - RIB FRACTURE [None]
